FAERS Safety Report 5768190-6 (Version None)
Quarter: 2008Q2

REPORT INFORMATION
  Report Type: 
  Country: None (occurrence: None)
  Receive Date: 20080609
  Receipt Date: 20080528
  Transmission Date: 20081010
  Serious: Yes (Hospitalization)
  Sender: FDA-Public Use
  Company Number: 2008AL006251

PATIENT
  Age: 0 Year
  Sex: Female

DRUGS (1)
  1. FEVERALL [Suspect]
     Indication: PYREXIA
     Dosage: 125 MG;QD;RTL
     Route: 054
     Dates: start: 20080325, end: 20080325

REACTIONS (4)
  - DYSPNOEA [None]
  - PRODUCTIVE COUGH [None]
  - PYREXIA [None]
  - VOMITING [None]
